FAERS Safety Report 18847182 (Version 2)
Quarter: 2022Q4

REPORT INFORMATION
  Report Type: Spontaneous
  Country: HU (occurrence: HU)
  Receive Date: 20210203
  Receipt Date: 20221026
  Transmission Date: 20230113
  Serious: Yes (Hospitalization)
  Sender: FDA-Public Use
  Company Number: HU-EXELIXIS-CABO-20034339

PATIENT
  Age: 71 Year
  Sex: Female
  Weight: 67 kg

DRUGS (9)
  1. CABOMETYX [Suspect]
     Active Substance: CABOZANTINIB S-MALATE
     Indication: Clear cell renal cell carcinoma
     Dosage: 60 MG, QD
     Route: 048
     Dates: start: 20200516, end: 20200619
  2. CABOMETYX [Suspect]
     Active Substance: CABOZANTINIB S-MALATE
     Dosage: 40 MG, QD
     Route: 048
     Dates: start: 20200704, end: 20210615
  3. NIVOLUMAB [Suspect]
     Active Substance: NIVOLUMAB
     Indication: Clear cell renal cell carcinoma
     Dosage: UNK
  4. NEBIVOLOL [Concomitant]
     Active Substance: NEBIVOLOL
  5. AMLODIPINE [Concomitant]
     Active Substance: AMLODIPINE BESYLATE
  6. ASPIRIN [Concomitant]
     Active Substance: ASPIRIN
  7. LERCANIDIPINE [Concomitant]
     Active Substance: LERCANIDIPINE
  8. INDAPAMIDE [Concomitant]
     Active Substance: INDAPAMIDE
  9. ALLOPURINOL [Concomitant]
     Active Substance: ALLOPURINOL

REACTIONS (9)
  - General physical health deterioration [Unknown]
  - Periorbital oedema [Recovered/Resolved]
  - Oedema peripheral [Recovered/Resolved]
  - Hepatic enzyme increased [Recovering/Resolving]
  - Hypertension [Not Recovered/Not Resolved]
  - Headache [Not Recovered/Not Resolved]
  - Hyperkalaemia [Recovered/Resolved]
  - Proteinuria [Recovered/Resolved]
  - Malignant neoplasm progression [Unknown]

NARRATIVE: CASE EVENT DATE: 20200610
